FAERS Safety Report 4749584-4 (Version None)
Quarter: 2005Q3

REPORT INFORMATION
  Report Type: 
  Country: None (occurrence: None)
  Receive Date: 20050822
  Receipt Date: 20050811
  Transmission Date: 20060218
  Serious: Yes (Hospitalization)
  Sender: FDA-Public Use
  Company Number: FI-GLAXOSMITHKLINE-B0390730A

PATIENT
  Sex: Female

DRUGS (5)
  1. ZANTAC [Suspect]
     Indication: ABDOMINAL PAIN UPPER
     Dates: start: 20040729, end: 20040807
  2. CRESTOR [Suspect]
     Indication: BLOOD CHOLESTEROL DECREASED
     Dosage: 1TAB PER DAY
     Route: 048
     Dates: start: 20040511, end: 20040630
  3. LANSOPRAZOLE [Suspect]
     Indication: GASTRIC DISORDER
     Dates: start: 20040816, end: 20040828
  4. LINATIL [Concomitant]
     Indication: BLOOD PRESSURE
     Dosage: 1TAB PER DAY
  5. LIBRAX [Concomitant]
     Indication: DRUG USE FOR UNKNOWN INDICATION

REACTIONS (4)
  - ABDOMINAL PAIN UPPER [None]
  - ALANINE AMINOTRANSFERASE INCREASED [None]
  - ASPARTATE AMINOTRANSFERASE INCREASED [None]
  - ENZYME ABNORMALITY [None]
